FAERS Safety Report 8908145 (Version 1)
Quarter: 2012Q4

REPORT INFORMATION
  Report Type: 
  Country: US (occurrence: US)
  Receive Date: 20121113
  Receipt Date: 20121113
  Transmission Date: 20130627
  Serious: No
  Sender: FDA-Public Use
  Company Number: US-AMGEN-USASP2012059178

PATIENT
  Age: 18 Year
  Sex: Female

DRUGS (1)
  1. ARANESP [Suspect]
     Indication: CONGENITAL CYSTIC KIDNEY DISEASE
     Dosage: UNK
     Dates: start: 2011

REACTIONS (2)
  - Haemoglobin decreased [Unknown]
  - Injection site pain [Recovered/Resolved]
